FAERS Safety Report 9794510 (Version 4)
Quarter: 2014Q2

REPORT INFORMATION
  Report Type: Report from Study
  Country: US (occurrence: US)
  Receive Date: 20140102
  Receipt Date: 20140505
  Transmission Date: 20141212
  Serious: Yes (Hospitalization)
  Sender: FDA-Public Use
  Company Number: US-ACTELION-A-NJ2013-92903

PATIENT
  Age: 80 Year
  Sex: Female

DRUGS (2)
  1. TRACLEER [Suspect]
     Indication: PULMONARY ARTERIAL HYPERTENSION
     Dosage: UNK
     Route: 048
  2. ZOCOR [Concomitant]

REACTIONS (5)
  - Infectious disease carrier [Recovering/Resolving]
  - Coronary artery occlusion [Recovering/Resolving]
  - Hypertension [Recovering/Resolving]
  - Bronchiectasis [Recovering/Resolving]
  - Tracheal pain [Recovering/Resolving]
